FAERS Safety Report 6808205-7 (Version None)
Quarter: 2010Q2

REPORT INFORMATION
  Report Type: 
  Country: None (occurrence: None)
  Receive Date: 20100629
  Receipt Date: 20090427
  Transmission Date: 20101027
  Serious: No
  Sender: FDA-Public Use
  Company Number: US-PFIZER INC-2009204374

PATIENT
  Sex: Male

DRUGS (2)
  1. VIAGRA [Suspect]
     Dosage: UNK
  2. CLARITIN [Suspect]
     Indication: SEASONAL ALLERGY
     Dosage: 10 MG, 1X/DAY

REACTIONS (5)
  - COLD SWEAT [None]
  - FEELING COLD [None]
  - SKIN DISCOLOURATION [None]
  - TREMOR [None]
  - VOMITING [None]
